FAERS Safety Report 22173706 (Version 1)
Quarter: 2023Q2

REPORT INFORMATION
  Report Type: Spontaneous
  Country: US (occurrence: US)
  Receive Date: 20230404
  Receipt Date: 20230404
  Transmission Date: 20230722
  Serious: Yes (Hospitalization)
  Sender: FDA-Public Use
  Company Number: US-JNJFOC-20230369048

PATIENT
  Age: 3 Day
  Sex: Male
  Weight: 3.4 kg

DRUGS (5)
  1. EVITHROM [Suspect]
     Active Substance: THROMBIN HUMAN
     Indication: Haemostasis
     Route: 061
  2. SURGICEL [Suspect]
     Active Substance: CELLULOSE, OXIDIZED\DEVICE
     Indication: Haemostasis
     Route: 061
  3. SILVER NITRATE [Concomitant]
     Active Substance: SILVER NITRATE
  4. VITAMIN K [Concomitant]
     Active Substance: PHYTONADIONE
  5. ARISTA AH [Concomitant]

REACTIONS (2)
  - Post procedural haemorrhage [Recovered/Resolved]
  - Drug ineffective [Unknown]
